FAERS Safety Report 15560103 (Version 1)
Quarter: 2018Q4

REPORT INFORMATION
  Report Type: Spontaneous
  Country: US (occurrence: US)
  Receive Date: 20181022
  Receipt Date: 20181022
  Transmission Date: 20190205
  Serious: Yes (Hospitalization)
  Sender: FDA-Public Use
  Company Number: None

PATIENT
  Age: 13 Year
  Sex: Female
  Weight: 44.4 kg

DRUGS (6)
  1. VINCRISTINE SULFATE. [Suspect]
     Active Substance: VINCRISTINE SULFATE
     Dates: end: 20181005
  2. DAUNORUBICIN [Suspect]
     Active Substance: DAUNORUBICIN
     Dates: end: 20181005
  3. ONCASPAR [Suspect]
     Active Substance: PEGASPARGASE
     Dates: end: 20181001
  4. PREDNISONE. [Suspect]
     Active Substance: PREDNISONE
     Dates: end: 20181005
  5. CYTARABINE. [Suspect]
     Active Substance: CYTARABINE
     Dates: end: 20180927
  6. METHOTREXATE. [Suspect]
     Active Substance: METHOTREXATE
     Dates: end: 20181005

REACTIONS (8)
  - Immunodeficiency [None]
  - Thrombocytopenia [None]
  - Neutropenia [None]
  - Anaemia [None]
  - Intentional product use issue [None]
  - Drug-induced liver injury [None]
  - Blood uric acid abnormal [None]
  - Hyperglycaemia [None]

NARRATIVE: CASE EVENT DATE: 20181005
